FAERS Safety Report 15689495 (Version 1)
Quarter: 2018Q4

REPORT INFORMATION
  Report Type: Spontaneous
  Country: US (occurrence: US)
  Receive Date: 20181204
  Receipt Date: 20181204
  Transmission Date: 20190205
  Serious: No
  Sender: FDA-Public Use
  Company Number: None

PATIENT
  Age: 6 Day
  Sex: Female
  Weight: 85.5 kg

DRUGS (1)
  1. GABAPENTIN 300 MG CAPSULE [Suspect]
     Active Substance: GABAPENTIN
     Indication: HERPES ZOSTER
     Dosage: ?          QUANTITY:1 CAPSULE(S);?
     Route: 048
     Dates: start: 20181204, end: 20181204

REACTIONS (9)
  - Gait disturbance [None]
  - Vision blurred [None]
  - Asthenopia [None]
  - Sinus headache [None]
  - Clumsiness [None]
  - Dizziness [None]
  - Somnolence [None]
  - Dyspnoea [None]
  - Visual field defect [None]

NARRATIVE: CASE EVENT DATE: 20181204
